FAERS Safety Report 23471840 (Version 2)
Quarter: 2024Q1

REPORT INFORMATION
  Report Type: Spontaneous
  Country: CN (occurrence: None)
  Receive Date: 20240202
  Receipt Date: 20240206
  Transmission Date: 20240409
  Serious: Yes (Hospitalization)
  Sender: FDA-Public Use
  Company Number: 2024A023262

PATIENT
  Age: 27933 Day
  Sex: Female
  Weight: 55 kg

DRUGS (1)
  1. BREZTRI [Suspect]
     Active Substance: BUDESONIDE\FORMOTEROL\GLYCOPYRROLATE
     Indication: Pneumonia
     Dosage: 2 IU
     Route: 055
     Dates: start: 20230104, end: 20230104

REACTIONS (2)
  - Tremor [Recovered/Resolved]
  - Cardiac flutter [Recovered/Resolved]

NARRATIVE: CASE EVENT DATE: 20240104
